FAERS Safety Report 4871346-8 (Version None)
Quarter: 2006Q1

REPORT INFORMATION
  Report Type: 
  Country: None (occurrence: None)
  Receive Date: 20060103
  Receipt Date: 20051222
  Transmission Date: 20060701
  Serious: Yes (Death, Hospitalization, Disabling)
  Sender: FDA-Public Use
  Company Number: US-MERCK-0512USA03746

PATIENT
  Age: 57 Year
  Sex: Male
  Weight: 89 kg

DRUGS (4)
  1. VIOXX [Suspect]
     Indication: OSTEOARTHRITIS
     Route: 048
     Dates: start: 20000118, end: 20000131
  2. VIOXX [Suspect]
     Route: 048
     Dates: start: 20000201, end: 20020529
  3. HUMALOG [Concomitant]
     Indication: DIABETES MELLITUS
     Route: 065
     Dates: start: 19980207, end: 20020101
  4. UNIVASC [Concomitant]
     Indication: HYPERTENSION
     Route: 065
     Dates: start: 19990602

REACTIONS (8)
  - BLOOD GLUCOSE FLUCTUATION [None]
  - CARDIAC FAILURE [None]
  - CEREBROVASCULAR ACCIDENT [None]
  - CHRONIC OBSTRUCTIVE PULMONARY DISEASE [None]
  - CORONARY ARTERY DISEASE [None]
  - DEPRESSION [None]
  - DIABETIC KETOACIDOSIS [None]
  - SINUSITIS [None]
